FAERS Safety Report 22750849 (Version 2)
Quarter: 2023Q4

REPORT INFORMATION
  Report Type: Report from Study
  Country: US (occurrence: US)
  Receive Date: 20230726
  Receipt Date: 20231012
  Transmission Date: 20240109
  Serious: Yes (Other)
  Sender: FDA-Public Use
  Company Number: US-MYLANLABS-2023M1044723

PATIENT
  Sex: Female
  Weight: 62.6 kg

DRUGS (1)
  1. GLATIRAMER ACETATE [Suspect]
     Active Substance: GLATIRAMER ACETATE
     Indication: Multiple sclerosis
     Dosage: 40 MILLIGRAM, 3XW
     Route: 058

REACTIONS (10)
  - Multiple sclerosis [Unknown]
  - Hypoaesthesia oral [Unknown]
  - Musculoskeletal stiffness [Unknown]
  - Injection site pruritus [Recovered/Resolved]
  - Injection site mass [Recovered/Resolved]
  - Hypoaesthesia [Unknown]
  - Cognitive disorder [Unknown]
  - Injection site swelling [Unknown]
  - Injection site nodule [Unknown]
  - Therapeutic product effect incomplete [Unknown]
